FAERS Safety Report 6688119 (Version 3)
Quarter: 2013Q2

REPORT INFORMATION
  Report Type: Spontaneous
  Country: GB (occurrence: GB)
  Receive Date: 20080701
  Receipt Date: 20130607
  Transmission Date: 20140414
  Serious: Yes (Hospitalization, Other)
  Sender: FDA-Public Use
  Company Number: GB-JNJFOC-20080605889

PATIENT
  Age: 6 Decade
  Sex: Female
  Weight: 48 kg

DRUGS (8)
  1. REMICADE [Suspect]
     Indication: RHEUMATOID ARTHRITIS
     Route: 042
     Dates: start: 20060131, end: 20060531
  2. PREDNISOLONE [Concomitant]
  3. AMLODIPINE [Concomitant]
  4. CALCICHEW [Concomitant]
  5. FOSAMAX [Concomitant]
  6. CELEBREX [Concomitant]
  7. TRAMADOL [Concomitant]
  8. METHOTREXATE [Concomitant]
     Dates: end: 20071220

REACTIONS (1)
  - Invasive ductal breast carcinoma [Unknown]
